FAERS Safety Report 6573756-X (Version None)
Quarter: 2010Q1

REPORT INFORMATION
  Report Type: 
  Country: None (occurrence: None)
  Receive Date: 20100208
  Receipt Date: 20100202
  Transmission Date: 20100710
  Serious: Yes (Life-Threatening, Hospitalization)
  Sender: FDA-Public Use
  Company Number: B0630506A

PATIENT
  Age: 76 Year
  Sex: Male
  Weight: 70 kg

DRUGS (4)
  1. DIGOXIN [Suspect]
     Indication: ATRIAL FIBRILLATION
     Route: 048
  2. RAMIPRIL [Concomitant]
  3. BISOPROLOL FUMARATE [Concomitant]
  4. WARFARIN SODIUM [Concomitant]

REACTIONS (3)
  - BRADYCARDIA [None]
  - SYNCOPE [None]
  - THERAPEUTIC AGENT TOXICITY [None]
